FAERS Safety Report 5382615-X (Version None)
Quarter: 2007Q2

REPORT INFORMATION
  Report Type: 
  Country: None (occurrence: None)
  Receive Date: 20070629
  Receipt Date: 20070308
  Transmission Date: 20071010
  Serious: Yes (Other)
  Sender: FDA-Public Use
  Company Number: US200701004506

PATIENT
  Age: 72 Year
  Sex: Female

DRUGS (6)
  1. HUMALOG [Suspect]
     Indication: DIABETES MELLITUS
     Dates: start: 19970101
  2. INSULIN [Suspect]
  3. HUMALOG PEN (HUMALOG PEN) [Concomitant]
  4. ALL OTHER THERAPEUTIC PRODUCTS [Concomitant]
  5. LANTUS [Concomitant]
  6. AVANDIA [Concomitant]

REACTIONS (4)
  - CATARACT [None]
  - CATARACT OPERATION [None]
  - RETINAL HAEMORRHAGE [None]
  - RETINOPATHY [None]
